FAERS Safety Report 22660177 (Version 1)
Quarter: 2023Q2

REPORT INFORMATION
  Report Type: Spontaneous
  Country: US (occurrence: US)
  Receive Date: 20230630
  Receipt Date: 20230630
  Transmission Date: 20230721
  Serious: No
  Sender: FDA-Public Use
  Company Number: US-AMX-002747

PATIENT
  Age: 71 Year
  Sex: Male

DRUGS (1)
  1. RELYVRIO [Suspect]
     Active Substance: SODIUM PHENYLBUTYRATE\TAURURSODIOL
     Indication: Amyotrophic lateral sclerosis

REACTIONS (6)
  - Upper respiratory tract infection [Unknown]
  - Asthenia [Unknown]
  - Decreased appetite [Unknown]
  - Product use complaint [Unknown]
  - Weight decreased [Unknown]
  - Nasal congestion [Unknown]
